FAERS Safety Report 20858325 (Version 1)
Quarter: 2022Q2

REPORT INFORMATION
  Report Type: Report from Study
  Country: US (occurrence: US)
  Receive Date: 20220521
  Receipt Date: 20220521
  Transmission Date: 20220721
  Serious: Yes (Hospitalization)
  Sender: FDA-Public Use
  Company Number: US-TAKEDA-US201831263

PATIENT
  Sex: Female

DRUGS (6)
  1. HUMAN C1-ESTERASE INHIBITOR [Suspect]
     Active Substance: HUMAN C1-ESTERASE INHIBITOR
     Indication: Immune system disorder
     Dosage: INTERNATIONAL UNIT, EVERY 3 TO 4 DAYS
     Route: 042
     Dates: start: 20161018
  2. HUMAN C1-ESTERASE INHIBITOR [Suspect]
     Active Substance: HUMAN C1-ESTERASE INHIBITOR
     Indication: Immune system disorder
     Dosage: INTERNATIONAL UNIT, EVERY 3 TO 4 DAYS
     Route: 042
     Dates: start: 20161018
  3. HUMAN C1-ESTERASE INHIBITOR [Suspect]
     Active Substance: HUMAN C1-ESTERASE INHIBITOR
     Indication: Immune system disorder
     Dosage: INTERNATIONAL UNIT, EVERY 3 TO 4 DAYS
     Route: 042
     Dates: start: 20161018
  4. HUMAN C1-ESTERASE INHIBITOR [Suspect]
     Active Substance: HUMAN C1-ESTERASE INHIBITOR
     Dosage: INTERNATIONAL UNIT, EVERY 3 TO 4 DAYS
     Route: 042
     Dates: start: 20161019
  5. HUMAN C1-ESTERASE INHIBITOR [Suspect]
     Active Substance: HUMAN C1-ESTERASE INHIBITOR
     Dosage: INTERNATIONAL UNIT, EVERY 3 TO 4 DAYS
     Route: 042
     Dates: start: 20161019
  6. HUMAN C1-ESTERASE INHIBITOR [Suspect]
     Active Substance: HUMAN C1-ESTERASE INHIBITOR
     Dosage: INTERNATIONAL UNIT, EVERY 3 TO 4 DAYS
     Route: 042
     Dates: start: 20161019

REACTIONS (2)
  - Hospitalisation [Unknown]
  - Hereditary angioedema [Recovered/Resolved]
